FAERS Safety Report 6525332-2 (Version None)
Quarter: 2010Q1

REPORT INFORMATION
  Report Type: 
  Country: None (occurrence: None)
  Receive Date: 20100104
  Receipt Date: 20091228
  Transmission Date: 20100710
  Serious: Yes (Hospitalization, Other)
  Sender: FDA-Public Use
  Company Number: US-BAYER-200925333NA

PATIENT
  Age: 48 Year
  Sex: Female
  Weight: 71 kg

DRUGS (8)
  1. MIRENA [Suspect]
     Indication: MENORRHAGIA
     Route: 015
     Dates: start: 20080506, end: 20090702
  2. FLEXERIL [Concomitant]
  3. XANAX [Concomitant]
     Indication: ANXIETY
     Dosage: 0.5 MG PO TID
     Route: 048
  4. PROVIGIL [Concomitant]
  5. TOPAMAX [Concomitant]
  6. NORCO [Concomitant]
  7. IMITREX [Concomitant]
     Indication: MIGRAINE
     Dosage: 100 MG PO
  8. REBIF [Concomitant]
     Indication: MULTIPLE SCLEROSIS
     Dosage: 3 TIMES A WEEK

REACTIONS (5)
  - AMENORRHOEA [None]
  - DEVICE DISLOCATION [None]
  - MEDICAL DEVICE COMPLICATION [None]
  - POST PROCEDURAL SEPSIS [None]
  - PROCEDURAL COMPLICATION [None]
